FAERS Safety Report 20675329 (Version 1)
Quarter: 2022Q2

REPORT INFORMATION
  Report Type: Spontaneous
  Country: US (occurrence: None)
  Receive Date: 20220404
  Receipt Date: 20220404
  Transmission Date: 20220721
  Serious: Yes (Hospitalization)
  Sender: FDA-Public Use
  Company Number: None

PATIENT
  Age: 59 Year
  Sex: Female

DRUGS (1)
  1. IBRANCE [Suspect]
     Active Substance: PALBOCICLIB
     Indication: Genital neoplasm malignant female
     Dosage: FREQUENCY: ONCE DAILY ON DAYS 1 TO 21OF A 28 DAY CYCLE
     Route: 048
     Dates: start: 202106

REACTIONS (1)
  - Large intestinal haemorrhage [None]

NARRATIVE: CASE EVENT DATE: 20220323
